FAERS Safety Report 19484808 (Version 1)
Quarter: 2021Q3

REPORT INFORMATION
  Report Type: Spontaneous
  Country: US (occurrence: US)
  Receive Date: 20210702
  Receipt Date: 20210702
  Transmission Date: 20211014
  Serious: No
  Sender: FDA-Public Use
  Company Number: US-SA-2021SA213523

PATIENT
  Sex: Female

DRUGS (6)
  1. MOMETASONE FUROATE. [Concomitant]
     Active Substance: MOMETASONE FUROATE
  2. QVAR REDIHALER [Concomitant]
     Active Substance: BECLOMETHASONE DIPROPIONATE
     Dosage: 40 UG
  3. EPINEPHRINE. [Concomitant]
     Active Substance: EPINEPHRINE
     Dosage: EPINEPHRINE ? 0.3MG/0
  4. DUPIXENT [Suspect]
     Active Substance: DUPILUMAB
     Indication: DERMATITIS ATOPIC
     Dosage: 300 MG, QOW
     Route: 058
  5. CEFDINIR. [Concomitant]
     Active Substance: CEFDINIR
     Dosage: 300 MG
  6. ALBUTEROL SULFATE HFA [Concomitant]
     Active Substance: ALBUTEROL SULFATE
     Dosage: 90 UG

REACTIONS (3)
  - Illness [Unknown]
  - Product dose omission issue [Unknown]
  - Urinary tract infection [Unknown]
